FAERS Safety Report 26125809 (Version 1)
Quarter: 2025Q4

REPORT INFORMATION
  Report Type: Spontaneous
  Country: US (occurrence: US)
  Receive Date: 20251205
  Receipt Date: 20251205
  Transmission Date: 20260119
  Serious: Yes (Hospitalization, Other)
  Sender: NORDIC PHARMA
  Company Number: US-NORDIC PHARMA, INC-2025US006599

PATIENT

DRUGS (3)
  1. SUCCINYLCHOLINE [Suspect]
     Active Substance: SUCCINYLCHOLINE
     Indication: General anaesthesia
     Dosage: UNK
  2. PROPOFOL [Suspect]
     Active Substance: PROPOFOL
     Indication: General anaesthesia
     Dosage: UNK
  3. REMIFENTANIL [Suspect]
     Active Substance: REMIFENTANIL
     Dosage: UNK

REACTIONS (3)
  - Muscle spasms [Unknown]
  - Rhabdomyolysis [Unknown]
  - Pigment nephropathy [Unknown]
